FAERS Safety Report 5682539-4 (Version None)
Quarter: 2008Q1

REPORT INFORMATION
  Report Type: 
  Country: None (occurrence: None)
  Receive Date: 20080327
  Receipt Date: 20080102
  Transmission Date: 20080703
  Serious: No
  Sender: FDA-Public Use
  Company Number: US-BRISTOL-MYERS SQUIBB COMPANY-13992789

PATIENT
  Age: 16 Year
  Sex: Female

DRUGS (8)
  1. ORENCIA [Suspect]
     Indication: JUVENILE ARTHRITIS
     Dosage: ORENCIA INFUSED OVER 30 MINS.2ND DOSE-7DEC07
     Route: 042
     Dates: start: 20071115
  2. ORENCIA [Suspect]
     Indication: UVEITIS
     Dosage: ORENCIA INFUSED OVER 30 MINS.2ND DOSE-7DEC07
     Route: 042
     Dates: start: 20071115
  3. ARTHROTEC [Concomitant]
     Route: 048
  4. MULTI-VITAMIN [Concomitant]
  5. PRED FORTE [Concomitant]
  6. METHOTREXATE [Concomitant]
     Dates: end: 20071030
  7. HUMIRA [Concomitant]
     Dates: end: 20071030
  8. PREDNISONE TAB [Concomitant]
     Dates: end: 20071030

REACTIONS (8)
  - ANXIETY [None]
  - DEPOSIT EYE [None]
  - FATIGUE [None]
  - FEELING ABNORMAL [None]
  - IRRITABILITY [None]
  - OFF LABEL USE [None]
  - RASH [None]
  - UVEITIS [None]
